FAERS Safety Report 8250383-X (Version None)
Quarter: 2012Q2

REPORT INFORMATION
  Report Type: 
  Country: None (occurrence: None)
  Receive Date: 20120402
  Receipt Date: 20120329
  Transmission Date: 20120825
  Serious: Yes (Other)
  Sender: FDA-Public Use
  Company Number: RU-ROCHE-1054139

PATIENT
  Age: 45 Year
  Sex: Female
  Weight: 79 kg

DRUGS (1)
  1. XENICAL [Suspect]
     Indication: OVERWEIGHT
     Route: 048
     Dates: start: 20111104, end: 20120220

REACTIONS (4)
  - WEIGHT INCREASED [None]
  - INFECTIOUS PERITONITIS [None]
  - GASTROINTESTINAL DISORDER [None]
  - DRUG INEFFECTIVE [None]
